FAERS Safety Report 6434632-6 (Version None)
Quarter: 2009Q4

REPORT INFORMATION
  Report Type: 
  Country: None (occurrence: None)
  Receive Date: 20091110
  Receipt Date: 20091030
  Transmission Date: 20100525
  Serious: Yes (Death, Disabling)
  Sender: FDA-Public Use
  Company Number: B0602336A

PATIENT
  Sex: Female
  Weight: 45 kg

DRUGS (2)
  1. LAPATINIB [Suspect]
     Indication: BREAST CANCER
     Dosage: 1250MG PER DAY
     Route: 048
     Dates: start: 20090312, end: 20090402
  2. CAPECITABINE [Suspect]
     Indication: BREAST CANCER
     Dosage: 1500MGM2 PER DAY
     Route: 048
     Dates: start: 20090312, end: 20090327

REACTIONS (2)
  - LUNG NEOPLASM MALIGNANT [None]
  - PALMAR-PLANTAR ERYTHRODYSAESTHESIA SYNDROME [None]
